FAERS Safety Report 5990631-X (Version None)
Quarter: 2008Q4

REPORT INFORMATION
  Report Type: 
  Country: None (occurrence: None)
  Receive Date: 20081211
  Receipt Date: 20081208
  Transmission Date: 20090506
  Serious: Yes (Hospitalization, Other)
  Sender: FDA-Public Use
  Company Number: B0549789A

PATIENT
  Age: 64 Year
  Sex: Female

DRUGS (2)
  1. CARVEDILOL [Suspect]
     Indication: DRUG USE FOR UNKNOWN INDICATION
     Dosage: 25MG PER DAY
     Dates: start: 20060101
  2. DIGOXIN [Suspect]
     Indication: CARDIAC FAILURE
     Dosage: .25MG PER DAY
     Dates: start: 20060101

REACTIONS (1)
  - ATRIAL FIBRILLATION [None]
